FAERS Safety Report 10236445 (Version 2)
Quarter: 2014Q2

REPORT INFORMATION
  Report Type: Report from Study
  Country: BR (occurrence: BR)
  Receive Date: 20140613
  Receipt Date: 20140624
  Transmission Date: 20141212
  Serious: Yes (Hospitalization)
  Sender: FDA-Public Use
  Company Number: BR-BRISTOL-MYERS SQUIBB COMPANY-20977229

PATIENT
  Age: 51 Year
  Sex: Female
  Weight: 77 kg

DRUGS (2)
  1. ERBITUX SOLN FOR INF [Suspect]
     Indication: RECTAL CANCER METASTATIC
     Dosage: FROM: APR12 OR 13,LAST INF: 27MAY14
     Route: 042
  2. MAREVAN [Concomitant]
     Dosage: TABLET

REACTIONS (2)
  - Renal vein thrombosis [Unknown]
  - Skin reaction [Not Recovered/Not Resolved]
